FAERS Safety Report 15366697 (Version 2)
Quarter: 2019Q1

REPORT INFORMATION
  Report Type: Spontaneous
  Country: IN (occurrence: IN)
  Receive Date: 20180910
  Receipt Date: 20190328
  Transmission Date: 20190417
  Serious: Yes (Other)
  Sender: FDA-Public Use
  Company Number: IN-PFIZER INC-2017159415

PATIENT
  Age: 73 Year
  Sex: Female

DRUGS (3)
  1. LETROZOLE. [Concomitant]
     Active Substance: LETROZOLE
     Dosage: UNK
     Dates: start: 20170318
  2. PALBACE [Suspect]
     Active Substance: PALBOCICLIB
     Indication: BREAST CANCER METASTATIC
     Dosage: 125 MG, UNK
     Route: 048
     Dates: start: 20170318
  3. PALBACE [Suspect]
     Active Substance: PALBOCICLIB
     Dosage: 125 MG, UNK
     Route: 048

REACTIONS (7)
  - Fall [Unknown]
  - Faeces discoloured [Unknown]
  - Renal disorder [Unknown]
  - Haemoglobin increased [Unknown]
  - White blood cell count decreased [Recovered/Resolved]
  - Upper limb fracture [Unknown]
  - Breast discharge [Recovered/Resolved]

NARRATIVE: CASE EVENT DATE: 2017
